FAERS Safety Report 19285481 (Version 5)
Quarter: 2022Q4

REPORT INFORMATION
  Report Type: Report from Study
  Country: JP (occurrence: JP)
  Receive Date: 20210521
  Receipt Date: 20221216
  Transmission Date: 20230113
  Serious: Yes (Other)
  Sender: FDA-Public Use
  Company Number: JP-ONO-2021JP011602

PATIENT
  Age: 45 Year
  Sex: Male
  Weight: 94.4 kg

DRUGS (17)
  1. ETELCALCETIDE [Suspect]
     Active Substance: ETELCALCETIDE
     Indication: Hyperparathyroidism secondary
     Dosage: 2.5 MILLIGRAM, Q56H
     Route: 065
     Dates: start: 20200526, end: 20200618
  2. ETELCALCETIDE [Suspect]
     Active Substance: ETELCALCETIDE
     Dosage: 5 MILLIGRAM, Q84H
     Route: 065
     Dates: start: 20200620, end: 20200714
  3. ETELCALCETIDE [Suspect]
     Active Substance: ETELCALCETIDE
     Dosage: 2.5 MILLIGRAM, QWK
     Route: 065
     Dates: start: 20200625, end: 20200709
  4. ETELCALCETIDE [Suspect]
     Active Substance: ETELCALCETIDE
     Dosage: 10  MILLIGRAM, Q56H
     Route: 065
     Dates: start: 20200716, end: 20200915
  5. ETELCALCETIDE [Suspect]
     Active Substance: ETELCALCETIDE
     Dosage: 15 MILLIGRAM, Q56H
     Route: 065
     Dates: start: 20200917, end: 20201222
  6. ETELCALCETIDE [Suspect]
     Active Substance: ETELCALCETIDE
     Dosage: 10  MILLIGRAM, Q56H
     Route: 065
     Dates: start: 20201224, end: 20210304
  7. ETELCALCETIDE [Suspect]
     Active Substance: ETELCALCETIDE
     Dosage: 10  MILLIGRAM, Q84H
     Route: 065
     Dates: start: 20210306
  8. ETELCALCETIDE [Suspect]
     Active Substance: ETELCALCETIDE
     Dosage: 15 MILLIGRAM, QWK
     Route: 065
     Dates: start: 20210311
  9. DARBEPOETIN ALFA [Concomitant]
     Active Substance: DARBEPOETIN ALFA
     Dosage: 30 NANOGRAM, QWK
     Route: 065
     Dates: start: 20200110
  10. ALFAROL [Concomitant]
     Active Substance: ALFACALCIDOL
     Dosage: 0.25 MICROGRAM, QD
     Route: 048
     Dates: end: 20201130
  11. ALFAROL [Concomitant]
     Active Substance: ALFACALCIDOL
     Dosage: 0.5 MICROGRAM, QD
     Route: 048
     Dates: start: 20201201, end: 20210111
  12. ALFAROL [Concomitant]
     Active Substance: ALFACALCIDOL
     Dosage: 0.25 MICROGRAM, Q56H
     Route: 048
     Dates: start: 20220405, end: 20221110
  13. ALFAROL [Concomitant]
     Active Substance: ALFACALCIDOL
     Dosage: 0.25 MICROGRAM, QD
     Dates: start: 20221111
  14. ROCALTROL [Concomitant]
     Active Substance: CALCITRIOL
     Dosage: 0.5 MICROGRAM, Q84H
     Route: 042
     Dates: start: 20210112, end: 20210930
  15. FOSRENOL [Concomitant]
     Active Substance: LANTHANUM CARBONATE
     Dosage: 2250 MILLIGRAM, QD
     Route: 048
  16. FERRIC CITRATE ANHYDROUS [Concomitant]
     Active Substance: FERRIC CITRATE ANHYDROUS
     Dosage: 1500 MILLIGRAM, QD
     Route: 048
  17. CALCIUM CARBONATE [Concomitant]
     Active Substance: CALCIUM CARBONATE
     Dosage: 3000 MILLIGRAM, QD
     Route: 065

REACTIONS (1)
  - Facial paralysis [Recovering/Resolving]

NARRATIVE: CASE EVENT DATE: 20210416
